FAERS Safety Report 6022043-7 (Version None)
Quarter: 2008Q4

REPORT INFORMATION
  Report Type: 
  Country: None (occurrence: None)
  Receive Date: 20081229
  Receipt Date: 20081217
  Transmission Date: 20090506
  Serious: Yes (Death, Hospitalization)
  Sender: FDA-Public Use
  Company Number: US-GILEAD-2008-0019559

PATIENT
  Sex: Male

DRUGS (5)
  1. TRUVADA [Suspect]
     Indication: HIV INFECTION
  2. ATAZANAVIR [Concomitant]
     Indication: ACQUIRED IMMUNODEFICIENCY SYNDROME
  3. RITONAVIR [Concomitant]
     Indication: ACQUIRED IMMUNODEFICIENCY SYNDROME
  4. DAPSONE [Concomitant]
     Indication: ANTIFUNGAL PROPHYLAXIS
  5. AMITRIPTYLINE [Concomitant]
     Indication: DEPRESSION

REACTIONS (1)
  - IMMUNE RECONSTITUTION SYNDROME [None]
